FAERS Safety Report 5594653-2 (Version None)
Quarter: 2007Q4

REPORT INFORMATION
  Report Type: 
  Country: None (occurrence: None)
  Receive Date: 20071217
  Receipt Date: 20061212
  Transmission Date: 20080405
  Serious: Yes (Other)
  Sender: FDA-Public Use
  Company Number: 2006152713

PATIENT
  Age: 56 Year
  Sex: Male

DRUGS (5)
  1. DOXAZOSIN (DOXAZOSIN) [Suspect]
     Indication: HYPERTENSION
     Dosage: 2 MG (1 D)
  2. ESCITALOPRAM OXALATE [Suspect]
     Indication: DEPRESSION
     Dosage: 10 MG (1 D)
     Dates: start: 20060101
  3. COZAAR [Concomitant]
  4. REMERON [Concomitant]
  5. NORVASC (NORVASC) [Concomitant]

REACTIONS (1)
  - ERECTILE DYSFUNCTION [None]
